FAERS Safety Report 4448028-X (Version None)
Quarter: 2004Q3

REPORT INFORMATION
  Report Type: 
  Country: None (occurrence: None)
  Receive Date: 20040823
  Receipt Date: 20040211
  Transmission Date: 20050211
  Serious: Yes (Hospitalization)
  Sender: FDA-Public Use
  Company Number: K200400202

PATIENT
  Age: 43 Year
  Sex: Male

DRUGS (3)
  1. SEPTRA DS [Suspect]
     Indication: ILL-DEFINED DISORDER
  2. NEULASTA [Suspect]
     Indication: CHEMOTHERAPY
     Dosage: 6 MG QD SUBCUTANEOUS
     Route: 058
     Dates: end: 20031208
  3. CLADRIBINE [Concomitant]

REACTIONS (4)
  - ALANINE AMINOTRANSFERASE INCREASED [None]
  - FEBRILE NEUTROPENIA [None]
  - HYPERSENSITIVITY [None]
  - RASH [None]
